FAERS Safety Report 25993519 (Version 1)
Quarter: 2025Q4

REPORT INFORMATION
  Report Type: Spontaneous
  Country: US (occurrence: US)
  Receive Date: 20251104
  Receipt Date: 20251104
  Transmission Date: 20260117
  Serious: No
  Sender: CELLTRION
  Company Number: US-CELLTRION INC.-2025US008354

PATIENT

DRUGS (12)
  1. INFLECTRA [Suspect]
     Active Substance: INFLIXIMAB-DYYB
     Indication: Neurosarcoidosis
     Dosage: UNK
     Route: 065
     Dates: start: 20240730
  2. INFLECTRA [Suspect]
     Active Substance: INFLIXIMAB-DYYB
     Dosage: UNK
     Route: 065
     Dates: start: 202408
  3. INFLECTRA [Suspect]
     Active Substance: INFLIXIMAB-DYYB
     Dosage: 400MG IN SODIUM CHLORIDE .9 PERCENT, 250ML
     Route: 065
     Dates: start: 20241231
  4. INFLECTRA [Suspect]
     Active Substance: INFLIXIMAB-DYYB
     Dosage: UNK
     Route: 065
     Dates: start: 20250225
  5. LUTEOLIN [Suspect]
     Active Substance: LUTEOLIN
     Indication: Antiinflammatory therapy
     Dosage: HAVE TO TAKE 2 CAPSULES, GIVES 100MG TOTAL
     Dates: start: 202409
  6. ASTAXANTHIN [Suspect]
     Active Substance: ASTAXANTHIN
     Indication: Antiinflammatory therapy
     Dosage: 12 MG GEL TAB
  7. ORGANIC TURMERIC [CURCUMA LONGA] [Concomitant]
     Dosage: LIQUID
  8. QUERCETIN [Concomitant]
     Active Substance: QUERCETIN
     Indication: COVID-19 prophylaxis
     Dosage: 500MG CAPSULES, 1 AT NIGHT
  9. ZINC [Concomitant]
     Active Substance: ZINC
     Indication: COVID-19 prophylaxis
     Dosage: 50 MG
  10. VITAMIN D NOS [Concomitant]
     Active Substance: CHOLECALCIFEROL\ERGOCALCIFEROL
     Indication: COVID-19 prophylaxis
     Dosage: 5000
  11. RHODIOLA ROSEA EXTRACT [Concomitant]
     Indication: COVID-19 prophylaxis
     Dosage: UNK
  12. VITAMINS NOS [Concomitant]
     Active Substance: VITAMINS
     Indication: COVID-19 prophylaxis
     Dosage: UNK

REACTIONS (3)
  - Weight decreased [Unknown]
  - Pain [Unknown]
  - Drug ineffective for unapproved indication [Unknown]

NARRATIVE: CASE EVENT DATE: 20240101
